FAERS Safety Report 8336486-X (Version None)
Quarter: 2012Q2

REPORT INFORMATION
  Report Type: 
  Country: None (occurrence: None)
  Receive Date: 20120504
  Receipt Date: 20120426
  Transmission Date: 20120825
  Serious: Yes (Hospitalization)
  Sender: FDA-Public Use
  Company Number: US-BAYER-2011-023423

PATIENT
  Age: 29 Year
  Sex: Female
  Weight: 50 kg

DRUGS (12)
  1. YASMIN [Suspect]
     Indication: CONTRACEPTION
     Dates: start: 20040101, end: 20060101
  2. PROTON PUMP INHIBITORS [Concomitant]
     Indication: EPIGASTRIC DISCOMFORT
  3. DIFFERIN [Concomitant]
     Indication: ACNE
     Dosage: UNK
     Dates: start: 19980101
  4. TAZORAC [Concomitant]
     Indication: ACNE
     Dosage: UNK
     Dates: start: 20070101
  5. ALBUTEROL [Concomitant]
  6. DROSPIRENONE AND ETHINYL ESTRADIOL [Suspect]
     Indication: CONTRACEPTION
     Dates: start: 20090701, end: 20100601
  7. DROSPIRENONE AND ETHINYL ESTRADIOL [Suspect]
     Indication: ACNE
  8. YASMIN [Suspect]
     Indication: ACNE
  9. H2 BLOCKER [Concomitant]
     Indication: EPIGASTRIC DISCOMFORT
  10. EXCEDRIN [ACETYLSALICYLIC ACID,CAFFEINE,PARACETAMOL] [Concomitant]
  11. NSAID'S [Concomitant]
  12. ACCUTANE [Concomitant]
     Indication: ACNE
     Dosage: UNK

REACTIONS (2)
  - ANXIETY [None]
  - PULMONARY EMBOLISM [None]
